FAERS Safety Report 9432268 (Version 1)
Quarter: 2013Q3

REPORT INFORMATION
  Report Type: Spontaneous
  Country: US (occurrence: US)
  Receive Date: 20130731
  Receipt Date: 20130731
  Transmission Date: 20140515
  Serious: Yes (Other)
  Sender: FDA-Public Use
  Company Number: PHHY2013US079691

PATIENT
  Age: 54 Year
  Sex: Female

DRUGS (2)
  1. ACETYLSALICYLIC ACID [Suspect]
     Dosage: UNK
     Route: 048
  2. EXCEDRIN TH [Concomitant]
     Indication: MIGRAINE

REACTIONS (2)
  - Drug hypersensitivity [Unknown]
  - Malaise [Unknown]
